FAERS Safety Report 8829240 (Version 1)
Quarter: 2012Q4

REPORT INFORMATION
  Report Type: Spontaneous
  Country: US (occurrence: None)
  Receive Date: 20121005
  Receipt Date: 20121005
  Transmission Date: 20130627
  Serious: Yes (Life-Threatening)
  Sender: FDA-Public Use
  Company Number: None

PATIENT
  Age: 57 Year
  Sex: Female
  Weight: 89.81 kg

DRUGS (1)
  1. ACYCLOVIR 800MG [Suspect]
     Indication: SHINGLES
     Dosage: 1 tab. 5 per day
     Dates: start: 20120705, end: 20120709

REACTIONS (6)
  - Renal disorder [None]
  - Restlessness [None]
  - Vomiting [None]
  - Hypophagia [None]
  - Headache [None]
  - Abnormal behaviour [None]
